FAERS Safety Report 9537083 (Version 1)
Quarter: 2013Q3

REPORT INFORMATION
  Report Type: Spontaneous
  Country: US (occurrence: US)
  Receive Date: 20130919
  Receipt Date: 20130919
  Transmission Date: 20140515
  Serious: No
  Sender: FDA-Public Use
  Company Number: US-PFIZER INC-2013268856

PATIENT
  Age: 89 Year
  Sex: Female

DRUGS (2)
  1. ADVIL [Suspect]
     Indication: PAIN IN EXTREMITY
     Dosage: 400 MG (200MG X TWO TABLETS), EVERY 4 HOURS
  2. ASPIRIN [Concomitant]
     Indication: SYSTEMIC LUPUS ERYTHEMATOSUS
     Dosage: 81 MG, UNK

REACTIONS (2)
  - Drug ineffective [Unknown]
  - Overdose [Unknown]
